FAERS Safety Report 13592397 (Version 1)
Quarter: 2017Q2

REPORT INFORMATION
  Report Type: Spontaneous
  Country: JP (occurrence: JP)
  Receive Date: 20170530
  Receipt Date: 20170530
  Transmission Date: 20170830
  Serious: Yes (Disabling, Other)
  Sender: FDA-Public Use
  Company Number: JP-JNJFOC-20141211848

PATIENT
  Age: 57 Year
  Sex: Female

DRUGS (1)
  1. INVEGA [Suspect]
     Active Substance: PALIPERIDONE
     Indication: PRODUCT USED FOR UNKNOWN INDICATION
     Route: 048
     Dates: start: 201210

REACTIONS (4)
  - Motor dysfunction [Unknown]
  - Musculoskeletal disorder [Unknown]
  - Dystonia [Unknown]
  - Parkinsonism [Unknown]
